FAERS Safety Report 24645810 (Version 1)
Quarter: 2024Q4

REPORT INFORMATION
  Report Type: Spontaneous
  Country: JP (occurrence: JP)
  Receive Date: 20241121
  Receipt Date: 20241121
  Transmission Date: 20250114
  Serious: Yes (Other)
  Sender: GLAXOSMITHKLINE
  Company Number: JP-GSK-JP2024GSK142238

PATIENT

DRUGS (19)
  1. LAMOTRIGINE [Suspect]
     Active Substance: LAMOTRIGINE
     Indication: Mania
     Dosage: 100 MG, 1D
  2. LAMOTRIGINE [Suspect]
     Active Substance: LAMOTRIGINE
     Indication: Bipolar I disorder
     Dosage: 25 MG
  3. LAMOTRIGINE [Suspect]
     Active Substance: LAMOTRIGINE
     Indication: Major depression
  4. DIAZEPAM [Concomitant]
     Active Substance: DIAZEPAM
     Indication: Bipolar I disorder
     Dosage: 6 MG
  5. SUVOREXANT [Concomitant]
     Active Substance: SUVOREXANT
     Indication: Bipolar I disorder
     Dosage: 15 MG
  6. TRAZODONE [Concomitant]
     Active Substance: TRAZODONE HYDROCHLORIDE
     Indication: Bipolar I disorder
     Dosage: 25 MG
  7. HERBALS [Concomitant]
     Active Substance: HERBALS
     Indication: Bipolar I disorder
     Dosage: 7.5 G
  8. ARIPIPRAZOLE [Concomitant]
     Active Substance: ARIPIPRAZOLE
     Indication: Mania
     Dosage: 24 MG
  9. ARIPIPRAZOLE [Concomitant]
     Active Substance: ARIPIPRAZOLE
     Indication: Bipolar I disorder
  10. ARIPIPRAZOLE [Concomitant]
     Active Substance: ARIPIPRAZOLE
     Indication: Major depression
  11. ZOTEPINE [Concomitant]
     Active Substance: ZOTEPINE
     Indication: Mania
     Dosage: 25 MG
  12. ZOTEPINE [Concomitant]
     Active Substance: ZOTEPINE
     Indication: Bipolar I disorder
  13. ZOTEPINE [Concomitant]
     Active Substance: ZOTEPINE
     Indication: Major depression
  14. RISPERIDONE [Concomitant]
     Active Substance: RISPERIDONE
     Indication: Mania
     Dosage: 1.5 MG
  15. RISPERIDONE [Concomitant]
     Active Substance: RISPERIDONE
     Indication: Bipolar I disorder
  16. RISPERIDONE [Concomitant]
     Active Substance: RISPERIDONE
     Indication: Major depression
  17. BLONANSERIN [Concomitant]
     Active Substance: BLONANSERIN
     Indication: Mania
     Dosage: 8 MG
  18. BLONANSERIN [Concomitant]
     Active Substance: BLONANSERIN
     Indication: Bipolar I disorder
  19. BLONANSERIN [Concomitant]
     Active Substance: BLONANSERIN
     Indication: Major depression

REACTIONS (5)
  - Corticobasal degeneration [Unknown]
  - Pleurothotonus [Recovered/Resolved]
  - Anxiety [Not Recovered/Not Resolved]
  - Agitation [Not Recovered/Not Resolved]
  - Abdominal pain [Not Recovered/Not Resolved]
